FAERS Safety Report 15262003 (Version 1)
Quarter: 2018Q3

REPORT INFORMATION
  Report Type: Spontaneous
  Country: FR (occurrence: FR)
  Receive Date: 20180809
  Receipt Date: 20180809
  Transmission Date: 20181010
  Serious: Yes (Death, Other)
  Sender: FDA-Public Use
  Company Number: FR-PFIZER INC-2018317555

PATIENT
  Age: 47 Year
  Sex: Female

DRUGS (3)
  1. ALPRAZOLAM. [Suspect]
     Active Substance: ALPRAZOLAM
     Route: 048
  2. CYAMEMAZINE [Suspect]
     Active Substance: CYAMEMAZINE
     Route: 048
  3. MORPHINE [Suspect]
     Active Substance: MORPHINE
     Route: 048
     Dates: end: 20130401

REACTIONS (2)
  - Mendelson^s syndrome [Fatal]
  - Poisoning deliberate [Fatal]
